FAERS Safety Report 26158245 (Version 1)
Quarter: 2025Q4

REPORT INFORMATION
  Report Type: Report from Study
  Country: EU (occurrence: EU)
  Receive Date: 20251215
  Receipt Date: 20251215
  Transmission Date: 20260117
  Serious: Yes (Other)
  Sender: ALEXION PHARMACEUTICALS
  Company Number: EU-ASTRAZENECA-202512EEA011610IE

PATIENT
  Sex: Female

DRUGS (12)
  1. TEZEPELUMAB [Suspect]
     Active Substance: TEZEPELUMAB
     Dosage: UNK
     Route: 065
  2. TEZEPELUMAB [Suspect]
     Active Substance: TEZEPELUMAB
  3. VIMOVO [Concomitant]
     Active Substance: ESOMEPRAZOLE MAGNESIUM\NAPROXEN
     Route: 065
  4. VENTOLIN [Concomitant]
     Active Substance: ALBUTEROL SULFATE
     Route: 065
  5. SPIRIVA [Concomitant]
     Active Substance: TIOTROPIUM BROMIDE MONOHYDRATE
     Route: 065
  6. NEXAZOLE [Concomitant]
     Route: 065
  7. RINOZAL [Concomitant]
     Route: 065
  8. MONTELUKAST [Concomitant]
     Active Substance: MONTELUKAST
     Route: 065
  9. Mirap [Concomitant]
     Route: 065
  10. FLUTICASONE FUROATE\VILANTEROL TRIFENATATE [Concomitant]
     Active Substance: FLUTICASONE FUROATE\VILANTEROL TRIFENATATE
     Route: 065
  11. AZITHROMYCIN [Concomitant]
     Active Substance: AZITHROMYCIN
     Route: 065
  12. SUMATRIPTAN [Concomitant]
     Active Substance: SUMATRIPTAN
     Route: 065

REACTIONS (2)
  - Injection site erythema [Unknown]
  - Lower respiratory tract infection [Unknown]
